FAERS Safety Report 13332851 (Version 3)
Quarter: 2017Q2

REPORT INFORMATION
  Report Type: Spontaneous
  Country: CA (occurrence: CA)
  Receive Date: 20170313
  Receipt Date: 20170413
  Transmission Date: 20170830
  Serious: Yes (Death)
  Sender: FDA-Public Use
  Company Number: CA-PFIZER INC-2017068115

PATIENT
  Age: 4 Month
  Sex: Male
  Weight: 5 kg

DRUGS (1)
  1. XELJANZ [Suspect]
     Active Substance: TOFACITINIB CITRATE
     Indication: ANGIOPATHY
     Dosage: 2.5 MG, 2X/DAY
     Route: 048
     Dates: start: 20170210

REACTIONS (2)
  - Interstitial lung disease [Fatal]
  - Product use issue [Unknown]

NARRATIVE: CASE EVENT DATE: 20170210
